FAERS Safety Report 7241825-7 (Version None)
Quarter: 2011Q1

REPORT INFORMATION
  Report Type: 
  Country: None (occurrence: None)
  Receive Date: 20110124
  Receipt Date: 20110113
  Transmission Date: 20110831
  Serious: Yes (Death, Life-Threatening, Hospitalization)
  Sender: FDA-Public Use
  Company Number: CA-SANOFI-AVENTIS-2010SA071876

PATIENT
  Age: 66 Year
  Sex: Female
  Weight: 101 kg

DRUGS (19)
  1. TRASTUZUMAB [Concomitant]
     Indication: BREAST CANCER
     Dates: start: 20101013, end: 20101013
  2. BUDESONIDE/FORMOTEROL [Concomitant]
     Route: 055
     Dates: start: 20100601
  3. BRICANYL [Concomitant]
     Route: 055
  4. DEXAMETHASONE [Concomitant]
     Route: 048
     Dates: start: 20101104
  5. GRANISETRON HCL [Concomitant]
     Indication: PREMEDICATION
     Route: 048
     Dates: start: 20101013
  6. METOPROLOL [Concomitant]
     Route: 048
     Dates: start: 20100801
  7. MICARDIS [Concomitant]
     Route: 048
     Dates: start: 20091001
  8. ROSUVASTATIN CALCIUM [Concomitant]
     Route: 048
     Dates: start: 20090901
  9. CLOTRIMAZOLE [Concomitant]
     Dates: start: 20101001
  10. TRASTUZUMAB [Concomitant]
     Dates: start: 20101104, end: 20101104
  11. DEXAMETHASONE [Concomitant]
     Indication: PREMEDICATION
     Route: 048
     Dates: start: 20101013
  12. TAXOTERE [Suspect]
     Indication: BREAST CANCER
     Route: 041
     Dates: start: 20101013, end: 20101013
  13. ALBUTEROL [Concomitant]
     Route: 055
  14. VITAMIN D [Concomitant]
     Dosage: DOSE:1000 UNIT(S)
     Route: 048
  15. PROCHLORPERAZINE [Concomitant]
     Indication: PREMEDICATION
     Route: 048
     Dates: start: 20101013
  16. TAXOTERE [Suspect]
     Route: 041
     Dates: start: 20101104, end: 20101104
  17. HYDROCHLOROTHIAZIDE [Concomitant]
     Route: 048
     Dates: start: 20080101
  18. GRANISETRON HCL [Concomitant]
     Route: 048
     Dates: start: 20101104
  19. ECTOSONE [Concomitant]

REACTIONS (2)
  - DYSPNOEA [None]
  - DEATH [None]
